FAERS Safety Report 25792931 (Version 1)
Quarter: 2025Q3

REPORT INFORMATION
  Report Type: Report from Study
  Country: US (occurrence: US)
  Receive Date: 20250911
  Receipt Date: 20250911
  Transmission Date: 20251021
  Serious: Yes (Other)
  Sender: BAYER HEALTHCARE PHARMACEUTICALS INC.
  Company Number: US-BAYER-2025A118138

PATIENT
  Age: 51 Year
  Sex: Male

DRUGS (1)
  1. STIVARGA [Suspect]
     Active Substance: REGORAFENIB MONOHYDRATE
     Indication: Colorectal cancer
     Dosage: 160 MG, QD FOR 21 DAYS ON, 7 DAYS OFF
     Route: 048

REACTIONS (6)
  - Neuropathy peripheral [None]
  - Oropharyngeal pain [Unknown]
  - Fatigue [None]
  - Diarrhoea [None]
  - Proctalgia [None]
  - Dysphonia [None]
